FAERS Safety Report 10987627 (Version 3)
Quarter: 2016Q1

REPORT INFORMATION
  Report Type: Spontaneous
  Country: US (occurrence: US)
  Receive Date: 20150404
  Receipt Date: 20160301
  Transmission Date: 20160525
  Serious: No
  Sender: FDA-Public Use
  Company Number: US-JNJFOC-20150114394

PATIENT
  Age: 42 Year
  Sex: Female
  Weight: 60.78 kg

DRUGS (1)
  1. REMICADE [Suspect]
     Active Substance: INFLIXIMAB
     Indication: RHEUMATOID ARTHRITIS
     Dosage: 4 VIALS
     Route: 042
     Dates: start: 2009

REACTIONS (9)
  - Drug ineffective [Not Recovered/Not Resolved]
  - Hypertension [Recovered/Resolved]
  - Pruritus generalised [Recovered/Resolved]
  - Drug dose omission [Unknown]
  - Generalised erythema [Recovered/Resolved]
  - Pain in extremity [Recovered/Resolved]
  - Pruritus [Recovered/Resolved]
  - Hypertension [Recovering/Resolving]
  - Pruritus [Recovered/Resolved]

NARRATIVE: CASE EVENT DATE: 2009
